FAERS Safety Report 8057829-0 (Version None)
Quarter: 2012Q1

REPORT INFORMATION
  Report Type: 
  Country: None (occurrence: None)
  Receive Date: 20120120
  Receipt Date: 20120113
  Transmission Date: 20120608
  Serious: No
  Sender: FDA-Public Use
  Company Number: US-BIOGENIDEC-2012BI001851

PATIENT
  Sex: Female

DRUGS (2)
  1. TYSABRI [Suspect]
     Indication: MULTIPLE SCLEROSIS
     Route: 042
     Dates: start: 20110901
  2. FLONASE [Concomitant]
     Indication: INFECTION PROPHYLAXIS

REACTIONS (8)
  - HYPOAESTHESIA [None]
  - HYPOTONIA [None]
  - BACK PAIN [None]
  - SINUSITIS [None]
  - CARPAL TUNNEL SYNDROME [None]
  - MUSCLE SPASMS [None]
  - CENTRAL NERVOUS SYSTEM LESION [None]
  - MUSCULAR WEAKNESS [None]
